FAERS Safety Report 17427426 (Version 1)
Quarter: 2020Q1

REPORT INFORMATION
  Report Type: Spontaneous
  Country: IN (occurrence: IN)
  Receive Date: 20200218
  Receipt Date: 20200218
  Transmission Date: 20200409
  Serious: Yes (Other)
  Sender: FDA-Public Use
  Company Number: IN-ALKEM LABORATORIES LIMITED-IN-ALKEM-2019-00527

PATIENT
  Age: 21 Year
  Sex: Male

DRUGS (9)
  1. LINEZOLID. [Suspect]
     Active Substance: LINEZOLID
     Indication: PYTHIUM INSIDIOSUM INFECTION
     Dosage: UNK
     Route: 065
  2. KETOCONAZOLE. [Concomitant]
     Active Substance: KETOCONAZOLE
     Indication: KERATITIS FUNGAL
     Dosage: 200 MG, BID
     Route: 048
  3. POLYHEXAMETHYLENE BIGUANIDE (PHMB) [Suspect]
     Active Substance: POLIHEXANIDE
     Indication: ACANTHAMOEBA KERATITIS
  4. NATAMYCIN [Concomitant]
     Active Substance: NATAMYCIN
     Indication: KERATITIS FUNGAL
     Dosage: 5 %, HOURLY
     Route: 065
  5. LINEZOLID. [Suspect]
     Active Substance: LINEZOLID
     Indication: ACANTHAMOEBA KERATITIS
  6. POLYHEXAMETHYLENE BIGUANIDE (PHMB) [Suspect]
     Active Substance: POLIHEXANIDE
     Indication: PYTHIUM INSIDIOSUM INFECTION
     Dosage: 0.04 %, UNK
     Route: 065
  7. VORICONAZOLE. [Concomitant]
     Active Substance: VORICONAZOLE
     Indication: KERATITIS FUNGAL
     Dosage: 1 %, HOURLY
  8. HOMATROPINE [Concomitant]
     Active Substance: HOMATROPINE HYDROBROMIDE
     Indication: KERATITIS FUNGAL
     Dosage: 2 %, TID
     Route: 061
  9. MOXIFLOXACIN. [Suspect]
     Active Substance: MOXIFLOXACIN
     Indication: PRODUCT USED FOR UNKNOWN INDICATION
     Dosage: 0.5 %, HOURLY
     Route: 061

REACTIONS (1)
  - Treatment failure [Unknown]
